FAERS Safety Report 23961725 (Version 2)
Quarter: 2024Q2

REPORT INFORMATION
  Report Type: Other
  Country: FR (occurrence: FR)
  Receive Date: 20240611
  Receipt Date: 20240625
  Transmission Date: 20240716
  Serious: Yes (Hospitalization, Other)
  Sender: FDA-Public Use
  Company Number: FR-B.Braun Medical Inc.-2158010

PATIENT
  Age: 18 Year
  Sex: Female

DRUGS (1)
  1. ACETAMINOPHEN [Suspect]
     Active Substance: ACETAMINOPHEN
     Indication: Hyperthermia

REACTIONS (3)
  - Metabolic acidosis [Recovering/Resolving]
  - Maternal exposure during pregnancy [Recovering/Resolving]
  - Pyroglutamic acidosis [Recovering/Resolving]
